FAERS Safety Report 5179408-5 (Version None)
Quarter: 2006Q4

REPORT INFORMATION
  Report Type: 
  Country: None (occurrence: None)
  Receive Date: 20061211
  Receipt Date: 20061204
  Transmission Date: 20070319
  Serious: Yes (Other)
  Sender: FDA-Public Use
  Company Number: 0612941

PATIENT
  Age: 38 Year
  Sex: Female

DRUGS (8)
  1. CARBAMAZEPINE [Suspect]
     Indication: EPILEPSY
     Dosage: 1200MG, QD, ORAL
     Route: 048
  2. STAVUDINE [Suspect]
     Indication: ACUTE HIV INFECTION
     Dosage: 30MG, BID, ORAL
     Route: 048
  3. ATAZANAVIR (ATAZANAVIR) [Suspect]
     Dosage: 300MG, QD, ORAL
     Route: 048
  4. RITONAVIR (RITONAVIR) [Suspect]
     Indication: ACUTE HIV INFECTION
     Dosage: 100MG, QD, ORAL
     Route: 048
  5. LAMOTRIGINE [Concomitant]
  6. KEPPRA [Concomitant]
  7. TENOFOVIR (TENOFOVIR) [Concomitant]
  8. LOPINAVIR/RITONAVIR (LOPINAVIR/RITONAVIR) [Concomitant]

REACTIONS (5)
  - ANTICONVULSANT DRUG LEVEL ABOVE THERAPEUTIC [None]
  - DRUG INTERACTION [None]
  - NAUSEA [None]
  - VERTIGO [None]
  - VOMITING [None]
